FAERS Safety Report 6511978-4 (Version None)
Quarter: 2009Q4

REPORT INFORMATION
  Report Type: 
  Country: None (occurrence: None)
  Receive Date: 20091222
  Receipt Date: 20090512
  Transmission Date: 20100525
  Serious: No
  Sender: FDA-Public Use
  Company Number: US-ASTRAZENECA-2009UW12234

PATIENT
  Age: 28062 Day
  Sex: Male
  Weight: 79.4 kg

DRUGS (1)
  1. CRESTOR [Suspect]
     Indication: BLOOD CHOLESTEROL
     Route: 048
     Dates: start: 20080301, end: 20080303

REACTIONS (2)
  - ASTHENIA [None]
  - PAIN [None]
